FAERS Safety Report 6939182-6 (Version None)
Quarter: 2010Q3

REPORT INFORMATION
  Report Type: 
  Country: None (occurrence: None)
  Receive Date: 20100824
  Receipt Date: 20100819
  Transmission Date: 20110219
  Serious: Yes (Death, Hospitalization, Other)
  Sender: FDA-Public Use
  Company Number: IT-BRISTOL-MYERS SQUIBB COMPANY-15240922

PATIENT
  Age: 60 Year
  Sex: Female

DRUGS (9)
  1. COUMADIN [Suspect]
     Indication: MITRAL VALVE REPLACEMENT
     Dosage: INTERRUPTED ON 10OCT2009
     Dates: start: 19831001
  2. IBRUPROFEN [Suspect]
     Indication: INTERVERTEBRAL DISC DISORDER
     Dosage: 400MG TABS INTERRUPTED ON 10OCT2009
     Route: 048
     Dates: start: 20090910
  3. METFORMIN [Suspect]
     Indication: TYPE 2 DIABETES MELLITUS
     Dosage: 1000MG FILM COATED TABLETS
     Route: 048
     Dates: start: 20061010, end: 20091010
  4. LASIX [Concomitant]
     Dosage: TABS
  5. CORDARONE [Concomitant]
     Dosage: TABS
  6. ANTIDEPRESSANT [Concomitant]
     Dosage: COATED TABS
  7. FOLINA [Concomitant]
     Dosage: SOFT CAPS
  8. LUVION [Concomitant]
     Dosage: TABS
  9. MEPRAL [Concomitant]
     Dosage: MODIFIED RELEASE CAPS

REACTIONS (6)
  - DIARRHOEA [None]
  - DRUG ADMINISTRATION ERROR [None]
  - INTERNATIONAL NORMALISED RATIO INCREASED [None]
  - LACTIC ACIDOSIS [None]
  - RENAL COLIC [None]
  - SEPSIS [None]
